FAERS Safety Report 17202525 (Version 1)
Quarter: 2019Q4

REPORT INFORMATION
  Report Type: Spontaneous
  Country: US (occurrence: US)
  Receive Date: 20191226
  Receipt Date: 20191226
  Transmission Date: 20200122
  Serious: Yes (Other)
  Sender: FDA-Public Use
  Company Number: US-PFIZER INC-2019554014

PATIENT
  Age: 56 Year
  Sex: Female

DRUGS (18)
  1. CYMBALTA [Suspect]
     Active Substance: DULOXETINE HYDROCHLORIDE
     Indication: PELVIC PAIN
  2. MUCINEX [Concomitant]
     Active Substance: GUAIFENESIN
     Indication: COUGH
  3. GEMFIBROZIL. [Suspect]
     Active Substance: GEMFIBROZIL
     Dosage: UNK
     Dates: start: 201908
  4. CYMBALTA [Suspect]
     Active Substance: DULOXETINE HYDROCHLORIDE
     Indication: BONE PAIN
  5. LORAZEPAM. [Concomitant]
     Active Substance: LORAZEPAM
     Dosage: UNK
  6. JAKAFI [Suspect]
     Active Substance: RUXOLITINIB
     Indication: POLYCYTHAEMIA VERA
     Dosage: 20 MG, 2X/DAY
     Route: 048
     Dates: start: 2012
  7. JAKAFI [Suspect]
     Active Substance: RUXOLITINIB
     Indication: MYELOFIBROSIS
     Dosage: 20 MG, 2X/DAY
     Route: 048
     Dates: start: 20140420
  8. JAKAFI [Suspect]
     Active Substance: RUXOLITINIB
     Dosage: 20 MG, 2X/DAY
     Route: 048
  9. CYMBALTA [Suspect]
     Active Substance: DULOXETINE HYDROCHLORIDE
     Indication: NEUROPATHY PERIPHERAL
     Dosage: UNK
     Dates: end: 2019
  10. CEPACOL [Concomitant]
     Active Substance: BENZOCAINE
     Indication: COUGH
     Dosage: UNK
  11. FLEXERIL [Concomitant]
     Active Substance: CYCLOBENZAPRINE HYDROCHLORIDE
     Dosage: UNK
  12. ATIVAN [Concomitant]
     Active Substance: LORAZEPAM
     Dosage: UNK
  13. MOTRIN [Concomitant]
     Active Substance: IBUPROFEN
     Dosage: UNK
  14. ASPIRIN. [Concomitant]
     Active Substance: ASPIRIN
     Dosage: UNK
  15. CEPACOL [Concomitant]
     Active Substance: BENZOCAINE
     Indication: OROPHARYNGEAL PAIN
  16. JAKAFI [Suspect]
     Active Substance: RUXOLITINIB
     Dosage: 20 MG, 2X/DAY
     Route: 048
     Dates: start: 20140429
  17. MECLIZINE [Concomitant]
     Active Substance: MECLIZINE HYDROCHLORIDE
     Dosage: UNK
  18. JAKAFI [Suspect]
     Active Substance: RUXOLITINIB
     Dosage: 20 MG, 2X/DAY
     Route: 048

REACTIONS (31)
  - Heart rate increased [Unknown]
  - Skin mass [Recovered/Resolved]
  - Erythema [Recovered/Resolved]
  - Glucose urine present [Not Recovered/Not Resolved]
  - Joint swelling [Recovering/Resolving]
  - Glycosylated haemoglobin [Recovered/Resolved]
  - Amyloidosis [Unknown]
  - Palpitations [Unknown]
  - Arthropod bite [Not Recovered/Not Resolved]
  - Dysphonia [Unknown]
  - Pain [Not Recovered/Not Resolved]
  - Swelling face [Unknown]
  - Hypoxia [Unknown]
  - Bacterial infection [Recovered/Resolved]
  - Heat stroke [Unknown]
  - Urine ketone body present [Unknown]
  - Decreased activity [Unknown]
  - Nausea [Unknown]
  - Blood glucose increased [Not Recovered/Not Resolved]
  - Renal pain [Not Recovered/Not Resolved]
  - Weight increased [Unknown]
  - Abdominal discomfort [Unknown]
  - Lymphadenopathy [Unknown]
  - Burning sensation [Not Recovered/Not Resolved]
  - Blood cholesterol increased [Unknown]
  - Skin cancer [Unknown]
  - Sensation of foreign body [Unknown]
  - Gait disturbance [Recovering/Resolving]
  - Blood triglycerides increased [Unknown]
  - Chromaturia [Recovered/Resolved]
  - Oedema peripheral [Not Recovered/Not Resolved]

NARRATIVE: CASE EVENT DATE: 2018
